FAERS Safety Report 16251271 (Version 1)
Quarter: 2019Q2

REPORT INFORMATION
  Report Type: Spontaneous
  Country: US (occurrence: US)
  Receive Date: 20190429
  Receipt Date: 20190429
  Transmission Date: 20190711
  Serious: Yes (Other)
  Sender: FDA-Public Use
  Company Number: US-SCILEX PHARMACEUTICALS INC.-2019SCX00034

PATIENT
  Age: 55 Year
  Sex: Male
  Weight: 85 kg

DRUGS (14)
  1. CIPROFLOXACIN. [Concomitant]
     Active Substance: CIPROFLOXACIN
     Dosage: 400 MG, 2X/DAY
     Route: 042
  2. FENTANYL. [Concomitant]
     Active Substance: FENTANYL
     Dosage: 30 ?G, EVERY 10 MINUTES
     Route: 042
  3. LIDOCAINE. [Suspect]
     Active Substance: LIDOCAINE
     Dosage: 1 MG/KG/HR
  4. RITONAVIR. [Suspect]
     Active Substance: RITONAVIR
     Dosage: 100 MG, 1X/DAY
     Route: 048
  5. CANDESARTAN. [Concomitant]
     Active Substance: CANDESARTAN
     Dosage: 16 MG, 1X/DAY
     Route: 048
  6. METOPROLOL SUCCINATE. [Concomitant]
     Active Substance: METOPROLOL SUCCINATE
     Dosage: 25 MG, 1X/DAY
     Route: 048
  7. ROSUVASTATIN. [Concomitant]
     Active Substance: ROSUVASTATIN
     Dosage: 40 MG, 1X/DAY
     Route: 048
  8. ATAZANAVIR. [Suspect]
     Active Substance: ATAZANAVIR
     Dosage: 300 MG, 1X/DAY
     Route: 048
  9. ABACAVIR/LAMIVUDINE [Suspect]
     Active Substance: ABACAVIR\LAMIVUDINE
     Dosage: 600MG/300MG
     Route: 048
  10. VANCOMYCIN [Concomitant]
     Active Substance: VANCOMYCIN
     Dosage: 1.25 G, 2X/DAY
     Route: 042
  11. LIDOCAINE. [Suspect]
     Active Substance: LIDOCAINE
     Indication: PROCEDURAL PAIN
     Dosage: 120 MG, ONCE
     Route: 042
  12. LIDOCAINE. [Suspect]
     Active Substance: LIDOCAINE
     Dosage: 2 MG/KG/HR
     Route: 042
  13. ASPIRIN. [Concomitant]
     Active Substance: ASPIRIN
     Dosage: 325 MG, 1X/DAY
     Route: 048
  14. HEPARIN [Concomitant]
     Active Substance: HEPARIN SODIUM
     Dosage: 5000 U, 3X/DAY
     Route: 058

REACTIONS (3)
  - Drug interaction [Recovered/Resolved]
  - Toxicity to various agents [Recovered/Resolved]
  - Loss of consciousness [Recovered/Resolved]
